FAERS Safety Report 9304052 (Version 3)
Quarter: 2013Q3

REPORT INFORMATION
  Report Type: Spontaneous
  Country: US (occurrence: None)
  Receive Date: 20130125
  Receipt Date: 20130815
  Transmission Date: 20140515
  Serious: Yes (Other)
  Sender: FDA-Public Use
  Company Number: ADR-2012-01714

PATIENT
  Age: 62 Year
  Sex: Male
  Weight: 58.51 kg

DRUGS (1)
  1. BACLOFEN INTRATHECAL [Suspect]
     Indication: POST LAMINECTOMY SYNDROME

REACTIONS (6)
  - Fall [None]
  - Restless legs syndrome [None]
  - Drug effect decreased [None]
  - Abdominal distension [None]
  - Pain [None]
  - Device malfunction [None]
